FAERS Safety Report 5714718-1 (Version None)
Quarter: 2008Q2

REPORT INFORMATION
  Report Type: 
  Country: None (occurrence: None)
  Receive Date: 20080423
  Receipt Date: 19860616
  Transmission Date: 20081010
  Serious: Yes (Death)
  Sender: FDA-Public Use
  Company Number: US-ROCHE-860200746001

PATIENT
  Age: 81 Year
  Sex: Female

DRUGS (2)
  1. CEFTRIAXONE SODIUM [Suspect]
     Indication: PNEUMONIA
     Route: 042
     Dates: start: 19860404, end: 19860409
  2. ANCEF [Concomitant]
     Dates: start: 19860409, end: 19860422

REACTIONS (1)
  - DEATH [None]
